FAERS Safety Report 9102787 (Version 1)
Quarter: 2013Q1

REPORT INFORMATION
  Report Type: Spontaneous
  Country: US (occurrence: US)
  Receive Date: 20130219
  Receipt Date: 20130219
  Transmission Date: 20140127
  Serious: Yes (Other)
  Sender: FDA-Public Use
  Company Number: FR-ASTELLAS-2013US001720

PATIENT
  Sex: Female
  Weight: 73 kg

DRUGS (1)
  1. MYRBETRIQ [Suspect]
     Indication: HYPERTONIC BLADDER
     Dosage: 25 MG, UID/QD
     Route: 048

REACTIONS (5)
  - Rectal haemorrhage [Unknown]
  - Gastrointestinal tract irritation [Unknown]
  - Haemorrhage [Unknown]
  - Constipation [Not Recovered/Not Resolved]
  - Faecal incontinence [Unknown]
